FAERS Safety Report 7503750-3 (Version None)
Quarter: 2011Q2

REPORT INFORMATION
  Report Type: 
  Country: None (occurrence: None)
  Receive Date: 20110525
  Receipt Date: 20110506
  Transmission Date: 20111010
  Serious: No
  Sender: FDA-Public Use
  Company Number: US-B.I. PHARMACEUTICALS,INC./RIDGEFIELD-2011-BP-09189BP

PATIENT
  Sex: Male

DRUGS (10)
  1. SIMVASTATIN [Concomitant]
     Dosage: 40 MG
  2. LISINOPRIL [Concomitant]
  3. PRADAXA [Suspect]
     Indication: ANTICOAGULANT THERAPY
     Dosage: 150 MG
  4. TOPROL-XL [Concomitant]
     Dosage: 50 MG
  5. PROZAC [Concomitant]
     Dosage: 20 MG
  6. CARDURA [Concomitant]
     Dosage: 4 MG
  7. LONOX [Concomitant]
  8. OMEPRAZOLE [Concomitant]
     Dosage: 40 MG
  9. GLIPIZIDE [Concomitant]
     Dosage: 10 MG
  10. DICLOFENAC SODIUM [Concomitant]
     Dosage: 75 MG

REACTIONS (3)
  - FLATULENCE [None]
  - DIARRHOEA [None]
  - DYSPEPSIA [None]
